FAERS Safety Report 19269993 (Version 1)
Quarter: 2021Q2

REPORT INFORMATION
  Report Type: Spontaneous
  Country: DE (occurrence: DE)
  Receive Date: 20210518
  Receipt Date: 20210518
  Transmission Date: 20210717
  Serious: Yes (Death, Hospitalization, Other)
  Sender: FDA-Public Use
  Company Number: DE-PURDUE-USA-2021-0257383

PATIENT
  Age: 85 Year
  Sex: Male

DRUGS (8)
  1. PARACETAMOL [Concomitant]
     Active Substance: ACETAMINOPHEN
     Dosage: UNK (500 MG, 1?0?1?0, TABLETTEN)
  2. LEVEMIR [Suspect]
     Active Substance: INSULIN DETEMIR
     Indication: PRODUCT USED FOR UNKNOWN INDICATION
     Dosage: UNK (16 IE, 0?0?1?0, INJEKTIONS?/INFUSIONSLOSUNG)
     Route: 065
  3. RISPERIDON [Suspect]
     Active Substance: RISPERIDONE
     Indication: PRODUCT USED FOR UNKNOWN INDICATION
     Dosage: UNK (0.5 MG, 1?0?1?0, TABLETTEN)
     Route: 065
  4. OXYCODONE HYDROCHLORIDE. [Suspect]
     Active Substance: OXYCODONE HYDROCHLORIDE
     Indication: PRODUCT USED FOR UNKNOWN INDICATION
     Dosage: 5 MG, BID, 5 MG, 1?0?1?0, RETARD?TABLETTEN
     Route: 065
  5. HUMALOG [Suspect]
     Active Substance: INSULIN LISPRO
     Indication: PRODUCT USED FOR UNKNOWN INDICATION
     Dosage: UNK (NACH PLAN, INJEKTIONS?/INFUSIONSLOSUNG)
     Route: 065
  6. MELPERON [Concomitant]
     Active Substance: MELPERONE
     Dosage: UNK (5 ML, 0?0?1?2, SAFT)
  7. CLOTRIGALEN [Concomitant]
     Dosage: UNK (1?0?0?0, CREME)
  8. PANTOPRAZOL                        /01263201/ [Concomitant]
     Active Substance: PANTOPRAZOLE
     Dosage: UNK (40 MG, 1?0?0?0, TABLETTEN)

REACTIONS (3)
  - Death [Fatal]
  - Medication error [Unknown]
  - Hypoglycaemia [Unknown]

NARRATIVE: CASE EVENT DATE: 20210201
